FAERS Safety Report 6366727-X (Version None)
Quarter: 2009Q3

REPORT INFORMATION
  Report Type: 
  Country: None (occurrence: None)
  Receive Date: 20090921
  Receipt Date: 20090819
  Transmission Date: 20100115
  Serious: No
  Sender: FDA-Public Use
  Company Number: US-BAYER-200930817NA

PATIENT
  Age: 51 Year
  Sex: Female
  Weight: 71 kg

DRUGS (3)
  1. ULTRAVIST (PHARMACY BULK) [Suspect]
     Indication: DRUG USE FOR UNKNOWN INDICATION
     Dosage: 4 ML/SEC, POWER INJECTOR AND WARMER
     Route: 042
     Dates: start: 20090819, end: 20090819
  2. TOPROL-XL [Concomitant]
  3. CONTRAST [Concomitant]
     Indication: COMPUTERISED TOMOGRAM
     Route: 048
     Dates: start: 20090819, end: 20090819

REACTIONS (4)
  - EAR PRURITUS [None]
  - EYE PRURITUS [None]
  - THROAT IRRITATION [None]
  - URTICARIA [None]
